FAERS Safety Report 15060770 (Version 1)
Quarter: 2018Q2

REPORT INFORMATION
  Report Type: Spontaneous
  Country: PL (occurrence: PL)
  Receive Date: 20180625
  Receipt Date: 20180625
  Transmission Date: 20180711
  Serious: Yes (Death, Other)
  Sender: FDA-Public Use
  Company Number: PL-BIODELIVERY SCIENCES INTERNATIONAL-2018BDSI0114

PATIENT
  Age: 75 Year
  Sex: Male

DRUGS (15)
  1. GABAPENTIN. [Suspect]
     Active Substance: GABAPENTIN
     Indication: PAIN
  2. METHOTREXATE. [Suspect]
     Active Substance: METHOTREXATE
     Indication: INVASIVE DUCTAL BREAST CARCINOMA
  3. FENTANYL CITRATE. [Suspect]
     Active Substance: FENTANYL CITRATE
     Dosage: DOSAGE FORM: UNSPECIFIED
     Route: 065
  4. GABAPENTIN. [Suspect]
     Active Substance: GABAPENTIN
     Route: 065
  5. FENTANYL. [Suspect]
     Active Substance: FENTANYL
     Dosage: CHANGED EVERY 72 HOURS
     Route: 065
  6. MORPHINE [Suspect]
     Active Substance: MORPHINE
     Indication: PAIN
  7. FENTANYL. [Suspect]
     Active Substance: FENTANYL
     Indication: PAIN
     Route: 065
  8. CYCLOPHOSPHAMIDE. [Suspect]
     Active Substance: CYCLOPHOSPHAMIDE
     Indication: INVASIVE DUCTAL BREAST CARCINOMA
  9. ZOLEDRONIC ACID [Suspect]
     Active Substance: ZOLEDRONIC ACID
     Indication: METASTASES TO BONE
     Dosage: 4 MG/4 WEEKS
     Route: 042
  10. KETOPROFEN. [Suspect]
     Active Substance: KETOPROFEN
     Indication: PAIN
  11. TRAMADOL. [Suspect]
     Active Substance: TRAMADOL
     Indication: PAIN
  12. GABAPENTIN. [Suspect]
     Active Substance: GABAPENTIN
     Route: 065
  13. LETROZOLE. [Suspect]
     Active Substance: LETROZOLE
     Indication: INVASIVE DUCTAL BREAST CARCINOMA
  14. FLUOROURACIL. [Suspect]
     Active Substance: FLUOROURACIL
     Indication: INVASIVE DUCTAL BREAST CARCINOMA
  15. FENTANYL CITRATE. [Suspect]
     Active Substance: FENTANYL CITRATE
     Indication: PAIN
     Route: 062

REACTIONS (10)
  - Fracture [Fatal]
  - Death [Fatal]
  - Peripheral swelling [Unknown]
  - Metastases to lymph nodes [Unknown]
  - Sudden death [Fatal]
  - Mobility decreased [Unknown]
  - Pathological fracture [Unknown]
  - Overdose [Unknown]
  - Metastases to lung [Unknown]
  - Drug ineffective [Unknown]
